FAERS Safety Report 11744023 (Version 1)
Quarter: 2015Q4

REPORT INFORMATION
  Report Type: Spontaneous
  Country: US (occurrence: US)
  Receive Date: 20151116
  Receipt Date: 20151116
  Transmission Date: 20160304
  Serious: No
  Sender: FDA-Public Use
  Company Number: US-DSJP-DSU-2015-103153

PATIENT
  Age: 62 Year
  Sex: Female
  Weight: 79.82 kg

DRUGS (2)
  1. WELCHOL [Suspect]
     Active Substance: COLESEVELAM HYDROCHLORIDE
     Indication: DIABETES MELLITUS
     Dosage: 3.75 G, QD
     Route: 048
     Dates: start: 201501, end: 201501
  2. METFORMIN [Concomitant]
     Active Substance: METFORMIN HYDROCHLORIDE
     Indication: DIABETES MELLITUS
     Dosage: 500 MG, BID
     Route: 048
     Dates: start: 2014

REACTIONS (5)
  - Dyspepsia [Recovered/Resolved]
  - Dysphagia [Recovered/Resolved]
  - Faeces hard [Unknown]
  - Abdominal pain upper [Unknown]
  - Muscle strain [Unknown]

NARRATIVE: CASE EVENT DATE: 201501
